FAERS Safety Report 17730319 (Version 1)
Quarter: 2020Q2

REPORT INFORMATION
  Report Type: Spontaneous
  Country: SI (occurrence: SI)
  Receive Date: 20200430
  Receipt Date: 20200430
  Transmission Date: 20200714
  Serious: Yes (Other)
  Sender: FDA-Public Use
  Company Number: SI-MYLANLABS-2020M1042344

PATIENT
  Age: 69 Year
  Sex: Male
  Weight: 85 kg

DRUGS (9)
  1. SODIUM CHLORIDE BRAUN [Concomitant]
     Active Substance: SODIUM CHLORIDE
     Indication: FLUID REPLACEMENT
     Dosage: 9MG/ML SOLUTION FOR INFUSION
     Route: 042
  2. NEURONTIN [Concomitant]
     Active Substance: GABAPENTIN
     Indication: QUADRIPARESIS
     Dosage: VIA AN OROGASTRIC TUBE, LONG-TERM THERAPY
     Route: 048
  3. NOVORAPID [Concomitant]
     Active Substance: INSULIN ASPART
     Indication: TYPE 2 DIABETES MELLITUS
     Dosage: 100 UNITS/ML SOLUTION FOR INJECTION IN VIALE
     Route: 042
  4. LIORESAL [Concomitant]
     Active Substance: BACLOFEN
     Indication: QUADRIPARESIS
     Dosage: VIA AN OROGASTRIC TUB
     Route: 048
  5. PANTOPRAZOL TEVA [Concomitant]
     Active Substance: PANTOPRAZOLE SODIUM
     Indication: PROPHYLAXIS
     Dosage: 40 MILLIGRAM, QD
     Route: 042
  6. PARACETAMOL KABI [Concomitant]
     Active Substance: ACETAMINOPHEN
     Indication: PYREXIA
     Dosage: 10 MG/ML SOLUTION FOR INFUSION
     Route: 042
  7. MEDROL [Concomitant]
     Active Substance: METHYLPREDNISOLONE
     Indication: QUADRIPARESIS
     Dosage: VIA AN ORALGASTRIC TUBE, HIGHER DRUG DOSE IN THE ACUTE  CONDITION
     Route: 048
  8. PIPERACILLIN AND TAZOBACTAM [Suspect]
     Active Substance: PIPERACILLIN SODIUM\TAZOBACTAM SODIUM
     Indication: PNEUMONIA PNEUMOCOCCAL
     Dosage: 4G/0,5G POWDER FOR SOLUTION FOR INFUSION
     Route: 042
  9. FRAXIPARINE [Concomitant]
     Active Substance: NADROPARIN CALCIUM
     Indication: THROMBOSIS PROPHYLAXIS
     Dosage: 5700 I.E. ANTI-XA/0,6 ML SOLUTION FOR INJECTION
     Route: 058

REACTIONS (3)
  - Herpes simplex [Recovering/Resolving]
  - Liver disorder [Recovering/Resolving]
  - Rash maculo-papular [Recovered/Resolved]

NARRATIVE: CASE EVENT DATE: 202003
